FAERS Safety Report 25017936 (Version 3)
Quarter: 2025Q3

REPORT INFORMATION
  Report Type: Report from Study
  Country: KR (occurrence: KR)
  Receive Date: 20250227
  Receipt Date: 20250809
  Transmission Date: 20251021
  Serious: Yes (Other)
  Sender: ALEXION PHARMACEUTICALS
  Company Number: KR-AstraZeneca-CH-00800428A

PATIENT
  Age: 68 Year
  Sex: Male

DRUGS (2)
  1. OSIMERTINIB [Suspect]
     Active Substance: OSIMERTINIB
     Indication: Lung carcinoma cell type unspecified stage IV
     Dosage: 80 MILLIGRAM, QD
     Dates: start: 202410
  2. OSIMERTINIB [Suspect]
     Active Substance: OSIMERTINIB
     Indication: Metastases to central nervous system

REACTIONS (10)
  - Scleroderma [Not Recovered/Not Resolved]
  - Vomiting [Recovered/Resolved]
  - Nystagmus [Not Recovered/Not Resolved]
  - Contusion [Not Recovered/Not Resolved]
  - Eating disorder [Recovered/Resolved]
  - Dizziness [Recovered/Resolved]
  - Skin exfoliation [Not Recovered/Not Resolved]
  - Inflammation [Not Recovered/Not Resolved]
  - Pigmentation disorder [Not Recovered/Not Resolved]
  - Skin disorder [Not Recovered/Not Resolved]

NARRATIVE: CASE EVENT DATE: 20250204
